FAERS Safety Report 13117085 (Version 2)
Quarter: 2017Q1

REPORT INFORMATION
  Report Type: Spontaneous
  Country: AR (occurrence: AR)
  Receive Date: 20170116
  Receipt Date: 20170330
  Transmission Date: 20170428
  Serious: Yes (Other)
  Sender: FDA-Public Use
  Company Number: AR-BAYER-2017-004534

PATIENT
  Age: 64 Year
  Sex: Male

DRUGS (3)
  1. REGORAFENIB [Suspect]
     Active Substance: REGORAFENIB
     Indication: HEPATIC CANCER
     Dosage: 160 MG, QD
     Dates: start: 20170110
  2. NEXAVAR [Suspect]
     Active Substance: SORAFENIB
     Indication: HEPATIC CANCER
     Dosage: UNK
  3. REGORAFENIB [Suspect]
     Active Substance: REGORAFENIB
     Indication: HEPATIC CANCER
     Dosage: 160 MG, QD
     Dates: start: 20161212

REACTIONS (5)
  - Off label use [None]
  - Hyperaesthesia [None]
  - Hepatic cancer [None]
  - Palmar-plantar erythrodysaesthesia syndrome [Unknown]
  - Erythema [None]

NARRATIVE: CASE EVENT DATE: 20161126
